FAERS Safety Report 6724035-9 (Version None)
Quarter: 2010Q2

REPORT INFORMATION
  Report Type: 
  Country: None (occurrence: None)
  Receive Date: 20100513
  Receipt Date: 20100505
  Transmission Date: 20101027
  Serious: Yes (Death)
  Sender: FDA-Public Use
  Company Number: A0859236A

PATIENT
  Sex: Male

DRUGS (2)
  1. SERETIDE [Suspect]
     Indication: DRUG USE FOR UNKNOWN INDICATION
     Route: 055
  2. SERTRALINE [Concomitant]

REACTIONS (1)
  - RESPIRATORY ARREST [None]
